FAERS Safety Report 20233297 (Version 1)
Quarter: 2021Q4

REPORT INFORMATION
  Report Type: Spontaneous
  Country: IT (occurrence: IT)
  Receive Date: 20211227
  Receipt Date: 20211227
  Transmission Date: 20220303
  Serious: Yes (Death)
  Sender: FDA-Public Use
  Company Number: IT-MALLINCKRODT-T202105665

PATIENT
  Sex: Male

DRUGS (2)
  1. UVADEX [Suspect]
     Active Substance: METHOXSALEN
     Indication: Acute graft versus host disease in liver
     Dosage: UNK EXTRACORPOREAL
     Route: 050
  2. HEPARIN [Concomitant]
     Active Substance: HEPARIN SODIUM
     Indication: Anticoagulant therapy
     Dosage: UNK
     Route: 065

REACTIONS (3)
  - Acute graft versus host disease in liver [Fatal]
  - Blood bilirubin increased [Unknown]
  - Product use in unapproved indication [Recovered/Resolved]
